FAERS Safety Report 12886636 (Version 1)
Quarter: 2016Q4

REPORT INFORMATION
  Report Type: Spontaneous
  Country: FR (occurrence: FR)
  Receive Date: 20161026
  Receipt Date: 20161026
  Transmission Date: 20170207
  Serious: Yes (Other)
  Sender: FDA-Public Use
  Company Number: FR-SA-2016SA191713

PATIENT
  Age: 40 Year
  Sex: Female

DRUGS (1)
  1. KETEK [Suspect]
     Active Substance: TELITHROMYCIN
     Route: 065

REACTIONS (6)
  - Somnolence [Unknown]
  - Abdominal pain upper [Unknown]
  - Dyspnoea [Unknown]
  - Vertigo [Unknown]
  - Blindness [Unknown]
  - Syncope [Unknown]
